FAERS Safety Report 18388184 (Version 1)
Quarter: 2020Q4

REPORT INFORMATION
  Report Type: Spontaneous
  Country: US (occurrence: US)
  Receive Date: 20201015
  Receipt Date: 20201015
  Transmission Date: 20210114
  Serious: No
  Sender: FDA-Public Use
  Company Number: US-BIOVITRUM-2020US5461

PATIENT
  Sex: Male
  Weight: 7 kg

DRUGS (2)
  1. SYNAGIS [Suspect]
     Active Substance: PALIVIZUMAB
     Indication: RESPIRATORY SYNCYTIAL VIRUS INFECTION
     Route: 030
  2. ALBUTEROL SULFATE. [Concomitant]
     Active Substance: ALBUTEROL SULFATE

REACTIONS (1)
  - Agitation neonatal [Unknown]
